FAERS Safety Report 4896524-3 (Version None)
Quarter: 2006Q1

REPORT INFORMATION
  Report Type: 
  Country: None (occurrence: None)
  Receive Date: 20060131
  Receipt Date: 20060110
  Transmission Date: 20060701
  Serious: Yes (Other)
  Sender: FDA-Public Use
  Company Number: NL-GLAXOSMITHKLINE-B0406092A

PATIENT
  Age: 23 Year
  Sex: Male

DRUGS (3)
  1. SEROXAT [Suspect]
     Indication: DEPRESSION
     Dates: start: 20051227
  2. RANITIDINE [Concomitant]
     Dosage: 150MG PER DAY
     Route: 065
     Dates: start: 20050927
  3. INDERM [Concomitant]
     Route: 065

REACTIONS (5)
  - ARRHYTHMIA [None]
  - CIRCULATORY COLLAPSE [None]
  - DRY MOUTH [None]
  - FALL [None]
  - SYNCOPE [None]
